FAERS Safety Report 12844119 (Version 2)
Quarter: 2017Q4

REPORT INFORMATION
  Report Type: Spontaneous
  Country: FR (occurrence: FR)
  Receive Date: 20161013
  Receipt Date: 20171013
  Transmission Date: 20180320
  Serious: Yes (Life-Threatening)
  Sender: FDA-Public Use
  Company Number: FR-PFIZER INC-2016470742

PATIENT
  Age: 74 Year
  Sex: Male

DRUGS (7)
  1. TAHOR [Suspect]
     Active Substance: ATORVASTATIN CALCIUM
     Dosage: 10 MG, 1X/DAY
     Route: 048
  2. LAMICTAL [Interacting]
     Active Substance: LAMOTRIGINE
     Dosage: 100 MG, DAILY
     Route: 048
     Dates: start: 20160917
  3. XTANDI [Interacting]
     Active Substance: ENZALUTAMIDE
     Indication: PROSTATE CANCER
     Dosage: 160 MG, 1X/DAY
     Route: 048
     Dates: end: 20161001
  4. COVERAM [Suspect]
     Active Substance: AMLODIPINE\PERINDOPRIL
     Indication: HYPERTENSION
     Dosage: UNK
     Route: 048
  5. COUMADINE [Suspect]
     Active Substance: WARFARIN SODIUM
     Indication: ATRIAL FIBRILLATION
     Dosage: 10 MG, 1X/DAY
     Route: 048
  6. LAMICTAL [Interacting]
     Active Substance: LAMOTRIGINE
     Indication: EPILEPSY
     Dosage: 25 MG, DAILY
     Route: 048
     Dates: start: 201607
  7. LAMICTAL [Interacting]
     Active Substance: LAMOTRIGINE
     Dosage: 150 MG, DAILY
     Route: 048

REACTIONS (3)
  - Epilepsy [Recovered/Resolved]
  - Therapeutic response decreased [Recovered/Resolved]
  - Drug interaction [Recovered/Resolved]

NARRATIVE: CASE EVENT DATE: 20160815
